FAERS Safety Report 11101626 (Version 1)
Quarter: 2015Q2

REPORT INFORMATION
  Report Type: Spontaneous
  Country: US (occurrence: US)
  Receive Date: 20150508
  Receipt Date: 20150508
  Transmission Date: 20150821
  Serious: Yes (Hospitalization)
  Sender: FDA-Public Use
  Company Number: US-ALLERGAN-1502537US

PATIENT
  Age: 84 Year
  Sex: Female
  Weight: 48.53 kg

DRUGS (1)
  1. RESTASIS [Suspect]
     Active Substance: CYCLOSPORINE
     Indication: DRY EYE
     Dosage: UNK, TWICE A DAY
     Route: 047
     Dates: start: 1990

REACTIONS (10)
  - Cerebrovascular accident [Recovered/Resolved]
  - Eye operation [Unknown]
  - Asthenia [Not Recovered/Not Resolved]
  - Dyspnoea [Not Recovered/Not Resolved]
  - Mycobacterium avium complex infection [Not Recovered/Not Resolved]
  - Cough [Unknown]
  - Rotator cuff syndrome [Recovered/Resolved]
  - Meniscus injury [Unknown]
  - Vaginal prolapse [Unknown]
  - Punctal plug insertion [Unknown]

NARRATIVE: CASE EVENT DATE: 2000
